FAERS Safety Report 6647260-4 (Version None)
Quarter: 2010Q1

REPORT INFORMATION
  Report Type: 
  Country: None (occurrence: None)
  Receive Date: 20100323
  Receipt Date: 20100313
  Transmission Date: 20100710
  Serious: Yes (Hospitalization)
  Sender: FDA-Public Use
  Company Number: A0850935A

PATIENT
  Sex: Female
  Weight: 63 kg

DRUGS (1)
  1. SERETIDE [Suspect]
     Route: 055
     Dates: start: 20090801

REACTIONS (4)
  - BACK PAIN [None]
  - CHEST PAIN [None]
  - DRUG INEFFECTIVE [None]
  - THROAT IRRITATION [None]
